FAERS Safety Report 9296181 (Version 2)
Quarter: 2013Q4

REPORT INFORMATION
  Report Type: Spontaneous
  Country: US (occurrence: US)
  Receive Date: 20130517
  Receipt Date: 20131107
  Transmission Date: 20140711
  Serious: Yes (Death, Hospitalization, Other)
  Sender: FDA-Public Use
  Company Number: US-B.I. PHARMACEUTICALS,INC./RIDGEFIELD-2013-BI-13939BP

PATIENT
  Age: 86 Year
  Sex: Male

DRUGS (15)
  1. PRADAXA [Suspect]
     Indication: ANTICOAGULANT THERAPY
     Dosage: 150 MG
     Dates: start: 20110826
  2. CLINDAMYCIN [Concomitant]
  3. PERIACTIN [Concomitant]
  4. ALBUTEROL INHALER [Concomitant]
  5. ATENOLOL [Concomitant]
     Dosage: 100 MG
     Route: 048
  6. CAPTOPRIL [Concomitant]
     Dosage: 100 MG
  7. LOVASTATIN [Concomitant]
     Dosage: 40 MG
     Route: 048
  8. ACETAMINOPHEN [Concomitant]
  9. PERCOCET [Concomitant]
  10. FUROSEMIDE [Concomitant]
     Dosage: 10 MG
     Route: 048
  11. POTASSIUM [Concomitant]
     Dosage: 20 MG
     Route: 048
  12. MAGNESIUM [Concomitant]
  13. PANTOPRAZOLE [Concomitant]
  14. MULTIVITAMINS [Concomitant]
  15. FOLIC ACID [Concomitant]
     Dosage: 1 MG
     Route: 048

REACTIONS (9)
  - Gastrointestinal haemorrhage [Fatal]
  - General physical health deterioration [Unknown]
  - Leukocytosis [Unknown]
  - Cardiac failure congestive [Unknown]
  - Pneumonia [Unknown]
  - Renal failure acute [Unknown]
  - Anaemia [Unknown]
  - Coagulopathy [Unknown]
  - Occult blood positive [Unknown]
